FAERS Safety Report 7347412-4 (Version None)
Quarter: 2011Q1

REPORT INFORMATION
  Report Type: 
  Country: None (occurrence: None)
  Receive Date: 20110311
  Receipt Date: 20110302
  Transmission Date: 20110831
  Serious: Yes (Other)
  Sender: FDA-Public Use
  Company Number: JP-ROCHE-764409

PATIENT
  Age: 31 Year
  Sex: Male

DRUGS (2)
  1. HORMONE NOS [Concomitant]
     Dosage: ADRENAL HORMONE PREPARATIONS, PERORAL AGENT, DOSAGE IS UNCERTAIN.
     Route: 048
  2. ACTEMRA [Suspect]
     Indication: JUVENILE ARTHRITIS
     Dosage: INTERVAL FOR 1-2 WEEKS
     Route: 041

REACTIONS (3)
  - CYTOMEGALOVIRUS INFECTION [None]
  - PNEUMONIA BACTERIAL [None]
  - THROMBOTIC MICROANGIOPATHY [None]
